FAERS Safety Report 7114608-6 (Version None)
Quarter: 2010Q4

REPORT INFORMATION
  Report Type: 
  Country: None (occurrence: None)
  Receive Date: 20101121
  Receipt Date: 20101108
  Transmission Date: 20110411
  Serious: Yes (Other)
  Sender: FDA-Public Use
  Company Number: FR-ELI_LILLY_AND_COMPANY-FR201011001921

PATIENT
  Age: 42 Year
  Sex: Female

DRUGS (6)
  1. PROZAC [Suspect]
     Route: 048
  2. DIPIPERON [Concomitant]
     Route: 048
  3. LARGACTIL [Concomitant]
  4. TERCIAN [Concomitant]
  5. DEPAKOTE [Concomitant]
  6. IMOVANE [Concomitant]

REACTIONS (1)
  - IMPULSIVE BEHAVIOUR [None]
